FAERS Safety Report 17335813 (Version 2)
Quarter: 2020Q1

REPORT INFORMATION
  Report Type: Spontaneous
  Country: US (occurrence: US)
  Receive Date: 20200129
  Receipt Date: 20200129
  Transmission Date: 20200409
  Serious: Yes (Hospitalization, Other)
  Sender: FDA-Public Use
  Company Number: US-SHIRE-US202002429

PATIENT
  Sex: Male
  Weight: 238 kg

DRUGS (4)
  1. VYVANSE [Suspect]
     Active Substance: LISDEXAMFETAMINE DIMESYLATE
     Indication: ATTENTION DEFICIT/HYPERACTIVITY DISORDER
     Dosage: 50 MILLIGRAM, 1X/DAY:QD
     Route: 048
  2. VYVANSE [Suspect]
     Active Substance: LISDEXAMFETAMINE DIMESYLATE
     Dosage: 70 MILLIGRAM, 1X/DAY:QD
     Route: 048
     Dates: start: 2017, end: 2018
  3. CANNABIS [Suspect]
     Active Substance: CANNABIS SATIVA SUBSP. INDICA TOP
     Indication: PRODUCT USED FOR UNKNOWN INDICATION
     Route: 065
  4. VYVANSE [Suspect]
     Active Substance: LISDEXAMFETAMINE DIMESYLATE
     Dosage: 70 UNK
     Route: 065
     Dates: start: 2003

REACTIONS (30)
  - Erectile dysfunction [Unknown]
  - Obsessive-compulsive disorder [Not Recovered/Not Resolved]
  - Sleep apnoea syndrome [Unknown]
  - Aggression [Not Recovered/Not Resolved]
  - Paranoia [Unknown]
  - Decreased appetite [Not Recovered/Not Resolved]
  - Abdominal pain upper [Unknown]
  - Nausea [Unknown]
  - Suicidal ideation [Not Recovered/Not Resolved]
  - Soliloquy [Not Recovered/Not Resolved]
  - Ambidexterity [Not Recovered/Not Resolved]
  - Homeless [Not Recovered/Not Resolved]
  - Insomnia [Unknown]
  - Cerebral disorder [Not Recovered/Not Resolved]
  - Mood swings [Not Recovered/Not Resolved]
  - Muscle spasms [Not Recovered/Not Resolved]
  - Unevaluable event [Not Recovered/Not Resolved]
  - Dizziness [Recovered/Resolved]
  - Weight decreased [Unknown]
  - Tremor [Not Recovered/Not Resolved]
  - Heart rate irregular [Unknown]
  - Mobility decreased [Not Recovered/Not Resolved]
  - Chest pain [Unknown]
  - Vomiting [Unknown]
  - Vision blurred [Unknown]
  - Dry mouth [Unknown]
  - Tinnitus [Unknown]
  - Mental disorder [Unknown]
  - Seizure [Recovered/Resolved]
  - Depression [Not Recovered/Not Resolved]

NARRATIVE: CASE EVENT DATE: 2003
